FAERS Safety Report 20175663 (Version 1)
Quarter: 2021Q4

REPORT INFORMATION
  Report Type: Spontaneous
  Country: US (occurrence: US)
  Receive Date: 20211213
  Receipt Date: 20211213
  Transmission Date: 20220303
  Serious: No
  Sender: FDA-Public Use
  Company Number: US-GLAXOSMITHKLINE-USCH2021AMR088439

PATIENT
  Sex: Female

DRUGS (4)
  1. MOTRIN [Suspect]
     Active Substance: IBUPROFEN
     Indication: Musculoskeletal stiffness
     Dosage: 600 MG
  2. MOTRIN [Suspect]
     Active Substance: IBUPROFEN
     Indication: Pain in extremity
  3. MOTRIN [Suspect]
     Active Substance: IBUPROFEN
     Indication: Arthralgia
  4. ZEJULA [Concomitant]
     Active Substance: NIRAPARIB
     Indication: Ovarian cancer
     Dosage: 200 MG, QD
     Dates: start: 20210515

REACTIONS (1)
  - Off label use [Unknown]
